FAERS Safety Report 10960800 (Version 1)
Quarter: 2015Q1

REPORT INFORMATION
  Report Type: Report from Study
  Country: FR (occurrence: FR)
  Receive Date: 20150327
  Receipt Date: 20150327
  Transmission Date: 20150721
  Serious: Yes (Other)
  Sender: FDA-Public Use
  Company Number: FR-CELGENE-056-20785-14080369

PATIENT

DRUGS (1)
  1. THALIDOMIDE [Suspect]
     Active Substance: THALIDOMIDE
     Indication: CUTANEOUS SARCOIDOSIS
     Dosage: NOT PROVIDED
     Route: 048

REACTIONS (2)
  - VIIth nerve paralysis [Unknown]
  - Depression [Unknown]
